FAERS Safety Report 8251854 (Version 2)
Quarter: 2012Q4

REPORT INFORMATION
  Report Type: 
  Country: US (occurrence: US)
  Receive Date: 20111117
  Receipt Date: 20121023
  Transmission Date: 20130627
  Serious: No
  Sender: FDA-Public Use
  Company Number: US-AMGEN-USASP2011000796

PATIENT
  Age: 63 Year
  Sex: Female

DRUGS (14)
  1. ENBREL [Suspect]
     Indication: RHEUMATOID ARTHRITIS
     Dosage: 50 mg, qwk
     Dates: start: 20101109
  2. ENBREL [Suspect]
     Dosage: UNK
  3. CITRACAL + D                       /01606701/ [Concomitant]
     Dosage: UNK UNK, qd
  4. FOLIC ACID [Concomitant]
     Dosage: 400 mug, qd
  5. HYDROXYCHLOROQUINE SULFATE [Concomitant]
     Dosage: 200 mg, bid
     Route: 048
  6. LEFLUNOMIDE [Concomitant]
     Dosage: 20 mg, qd
     Route: 048
  7. METOPROLOL SUCCINATE [Concomitant]
     Dosage: 100 mg, qd
  8. MULTIVITAMIN                       /00097801/ [Concomitant]
     Dosage: UNK UNK, qd
  9. OSTEO BI-FLEX [Concomitant]
     Dosage: UNK UNK, bid
  10. RAMIPRIL [Concomitant]
     Dosage: 10 mg, qd
  11. SYSTANE BALANCE [Concomitant]
     Dosage: 0.6 %, bid
  12. TYLENOL /00020001/ [Concomitant]
     Dosage: 650 mg, prn
  13. VITAMIN D /00107901/ [Concomitant]
     Dosage: 1000 IU, qd
  14. HYDROXYCHLOROQUINE [Concomitant]

REACTIONS (31)
  - Joint effusion [Not Recovered/Not Resolved]
  - Dry mouth [Unknown]
  - Abdominal pain [Unknown]
  - Musculoskeletal stiffness [Unknown]
  - Fatigue [Unknown]
  - Dry eye [Unknown]
  - Cough [Unknown]
  - Dyspepsia [Unknown]
  - Amnesia [Unknown]
  - Sleep disorder [Unknown]
  - Nasal congestion [Unknown]
  - Back pain [Unknown]
  - Nodal osteoarthritis [Unknown]
  - Joint swelling [Unknown]
  - Arthralgia [Unknown]
  - Joint contracture [Unknown]
  - Activities of daily living impaired [Unknown]
  - Gait disturbance [Unknown]
  - Anxiety [Unknown]
  - Joint crepitation [Unknown]
  - Osteoarthritis [Unknown]
  - Senile osteoporosis [Unknown]
  - Oedema [Unknown]
  - Blood glucose abnormal [Unknown]
  - Laboratory test abnormal [Unknown]
  - Musculoskeletal pain [Unknown]
  - Pathological fracture [Unknown]
  - Treatment noncompliance [Unknown]
  - Essential hypertension [Unknown]
  - Drug ineffective [Not Recovered/Not Resolved]
  - Diarrhoea [Unknown]
